FAERS Safety Report 4302984-9 (Version None)
Quarter: 2004Q1

REPORT INFORMATION
  Report Type: 
  Country: None (occurrence: None)
  Receive Date: 20040223
  Receipt Date: 20040223
  Transmission Date: 20041129
  Serious: Yes (Other)
  Sender: FDA-Public Use
  Company Number: None

PATIENT
  Age: 55 Year
  Sex: Male
  Weight: 83.0083 kg

DRUGS (1)
  1. TEQUIN [Suspect]
     Indication: PNEUMONIA
     Dosage: 1 TABLET DAILY ORAL
     Route: 048
     Dates: start: 20040204, end: 20040205

REACTIONS (6)
  - DIZZINESS [None]
  - DYSGEUSIA [None]
  - HEART RATE DECREASED [None]
  - INSOMNIA [None]
  - MENTAL STATUS CHANGES [None]
  - TINNITUS [None]
